FAERS Safety Report 23116549 (Version 3)
Quarter: 2024Q4

REPORT INFORMATION
  Report Type: Report from Study
  Country: EG (occurrence: EG)
  Receive Date: 20231027
  Receipt Date: 20241014
  Transmission Date: 20250115
  Serious: Yes (Other)
  Sender: SANDOZ
  Company Number: EG-SANDOZ-SDZ2023EG046313

PATIENT
  Age: 46 Year
  Sex: Female
  Weight: 62 kg

DRUGS (10)
  1. HYRIMOZ [Suspect]
     Active Substance: ADALIMUMAB-ADAZ
     Indication: Rheumatoid arthritis
     Dosage: 40 MG, Q2W, EVERY OTHER WEEK
     Route: 058
     Dates: start: 20230525
  2. HERBALS [Concomitant]
     Active Substance: HERBALS
     Indication: Nasopharyngitis
     Dosage: 10 ML EVERY 12 HOURS
     Route: 048
     Dates: start: 20231216
  3. COLOSALAZINE EC [Concomitant]
     Indication: Rheumatoid arthritis
     Dosage: 2 DF, BID
     Route: 048
  4. COLOSALAZINE EC [Concomitant]
     Indication: Abdominal discomfort
  5. Comtrex [Concomitant]
     Indication: Nasopharyngitis
     Dosage: UNK, BID
     Route: 048
     Dates: start: 20231216, end: 20231219
  6. Comtrex [Concomitant]
     Indication: Rhinitis
  7. Solupred [Concomitant]
     Indication: Rheumatoid arthritis
     Dosage: HALF TABLET ONCE EVERY DAY
     Route: 048
  8. VITAMIN C [Concomitant]
     Active Substance: ASCORBIC ACID
     Indication: Nasopharyngitis
     Dosage: 1 TABLET ONCE A DAY
     Route: 048
     Dates: start: 20231216
  9. XITHRONE [Concomitant]
     Indication: Nasopharyngitis
     Dosage: ONE TABLET ONCE DAILY
     Route: 048
     Dates: start: 20231216, end: 20231220
  10. ZYRTEC [Concomitant]
     Active Substance: CETIRIZINE HYDROCHLORIDE
     Indication: Pruritus
     Dosage: ONE TABLET AT THE NIGHT ON THE DAY OF HER HYRIMOZ DOSE
     Route: 048
     Dates: start: 20230923

REACTIONS (13)
  - Menstruation irregular [Not Recovered/Not Resolved]
  - Hair texture abnormal [Not Recovered/Not Resolved]
  - Dry skin [Not Recovered/Not Resolved]
  - Therapeutic response unexpected [Unknown]
  - C-reactive protein increased [Unknown]
  - Loss of personal independence in daily activities [Unknown]
  - Fatigue [Unknown]
  - Product dose omission issue [Unknown]
  - Product availability issue [Unknown]
  - Pruritus [Not Recovered/Not Resolved]
  - Nasopharyngitis [Recovering/Resolving]
  - Rhinitis [Recovering/Resolving]
  - Cough [Recovering/Resolving]

NARRATIVE: CASE EVENT DATE: 20230501
